FAERS Safety Report 4754181-0 (Version None)
Quarter: 2005Q3

REPORT INFORMATION
  Report Type: 
  Country: None (occurrence: None)
  Receive Date: 20050825
  Receipt Date: 20050615
  Transmission Date: 20060218
  Serious: Yes (Hospitalization, Other)
  Sender: FDA-Public Use
  Company Number: 2005089809

PATIENT
  Sex: Female

DRUGS (2)
  1. CADUET [Suspect]
     Indication: HYPERLIPIDAEMIA
     Dosage: 5MG/10MG (1 IN 1 D), ORAL
     Route: 048
  2. CADUET [Suspect]
     Indication: HYPERTENSION
     Dosage: 5MG/10MG (1 IN 1 D), ORAL
     Route: 048

REACTIONS (1)
  - THROMBOCYTOPENIA [None]
